FAERS Safety Report 11520453 (Version 1)
Quarter: 2015Q3

REPORT INFORMATION
  Report Type: Spontaneous
  Country: US (occurrence: None)
  Receive Date: 20150917
  Receipt Date: 20150917
  Transmission Date: 20151125
  Serious: Yes (Hospitalization)
  Sender: FDA-Public Use
  Company Number: None

PATIENT
  Age: 60 Year
  Sex: Male
  Weight: 93.44 kg

DRUGS (1)
  1. FETZIMA [Suspect]
     Active Substance: LEVOMILNACIPRAN HYDROCHLORIDE
     Indication: DEPRESSION
     Route: 048
     Dates: start: 20150820, end: 20150913

REACTIONS (9)
  - Mania [None]
  - Anger [None]
  - Euphoric mood [None]
  - Aggression [None]
  - Parosmia [None]
  - Suicide attempt [None]
  - Passive smoking [None]
  - Ageusia [None]
  - Depression [None]

NARRATIVE: CASE EVENT DATE: 20150913
